FAERS Safety Report 8984517 (Version 1)
Quarter: 2012Q4

REPORT INFORMATION
  Report Type: 
  Country: US (occurrence: US)
  Receive Date: 20121226
  Receipt Date: 20121226
  Transmission Date: 20130627
  Serious: Yes (Other)
  Sender: FDA-Public Use
  Company Number: US-JNJFOC-20121209800

PATIENT
  Age: 10 Year
  Sex: Female

DRUGS (4)
  1. INFLIXIMAB, RECOMBINANT [Suspect]
     Indication: UVEITIS
     Route: 042
  2. INFLIXIMAB, RECOMBINANT [Suspect]
     Indication: JUVENILE ARTHRITIS
     Route: 042
  3. STEROIDS NOS [Concomitant]
     Route: 061
  4. METHOTREXATE [Concomitant]
     Route: 058

REACTIONS (3)
  - Drug hypersensitivity [Unknown]
  - Juvenile idiopathic arthritis [Recovering/Resolving]
  - Uveitis [Recovering/Resolving]
